FAERS Safety Report 7471172-X (Version None)
Quarter: 2011Q2

REPORT INFORMATION
  Report Type: 
  Country: None (occurrence: None)
  Receive Date: 20110510
  Receipt Date: 20110429
  Transmission Date: 20111010
  Serious: Yes (Hospitalization)
  Sender: FDA-Public Use
  Company Number: DE-GENENTECH-316376

PATIENT
  Age: 62 Year
  Sex: Male

DRUGS (1)
  1. RITUXAN [Suspect]
     Indication: NON-HODGKIN'S LYMPHOMA
     Dosage: UNK
     Route: 065

REACTIONS (4)
  - PAIN IN EXTREMITY [None]
  - MONOPLEGIA [None]
  - ABASIA [None]
  - NON-HODGKIN'S LYMPHOMA RECURRENT [None]
